FAERS Safety Report 6831194-6 (Version None)
Quarter: 2010Q3

REPORT INFORMATION
  Report Type: 
  Country: None (occurrence: None)
  Receive Date: 20100709
  Receipt Date: 20100709
  Transmission Date: 20110219
  Serious: No
  Sender: FDA-Public Use
  Company Number: None

PATIENT
  Sex: Female
  Weight: 50.8029 kg

DRUGS (2)
  1. FOSAMAX [Suspect]
     Indication: OSTEOPENIA
     Dosage: ONE PILL ONCE A WEEK PO
     Route: 048
     Dates: start: 20070115, end: 20100705
  2. FOSAMAX [Suspect]
     Indication: OSTEOPOROSIS
     Dosage: ONE PILL ONCE A WEEK PO
     Route: 048
     Dates: start: 20070115, end: 20100705

REACTIONS (3)
  - ARTHRALGIA [None]
  - BONE PAIN [None]
  - MYALGIA [None]
